FAERS Safety Report 5789241-9 (Version None)
Quarter: 2008Q2

REPORT INFORMATION
  Report Type: 
  Country: None (occurrence: None)
  Receive Date: 20080625
  Receipt Date: 20080625
  Transmission Date: 20081010
  Serious: Yes (Hospitalization)
  Sender: FDA-Public Use
  Company Number: None

PATIENT
  Age: 26 Year
  Sex: Female
  Weight: 77.1115 kg

DRUGS (1)
  1. METOCLOPRAMIDE [Suspect]
     Dosage: 10MG QID PO
     Route: 048
     Dates: start: 20080621, end: 20080622

REACTIONS (8)
  - BRUXISM [None]
  - DYSPNOEA [None]
  - DYSTONIA [None]
  - MUSCLE DISORDER [None]
  - MUSCLE TWITCHING [None]
  - OBSTRUCTIVE AIRWAYS DISORDER [None]
  - RESTLESSNESS [None]
  - TONGUE DISORDER [None]
